FAERS Safety Report 13468320 (Version 1)
Quarter: 2017Q2

REPORT INFORMATION
  Report Type: Spontaneous
  Country: GB (occurrence: GB)
  Receive Date: 20170421
  Receipt Date: 20170421
  Transmission Date: 20170830
  Serious: Yes (Other)
  Sender: FDA-Public Use
  Company Number: GB-SMITH AND NEPHEW, INC-2017SMT00237

PATIENT
  Age: 71 Year
  Sex: Male

DRUGS (1)
  1. COLLAGENASE CLOSTRIDIUM HISTOLYTICUM [Suspect]
     Active Substance: COLLAGENASE CLOSTRIDIUM HISTOLYTICUM
     Indication: DUPUYTREN^S CONTRACTURE
     Dosage: UNK UNK, ONCE
     Route: 065

REACTIONS (1)
  - Syndactyly [Not Recovered/Not Resolved]
